FAERS Safety Report 6299984-9 (Version None)
Quarter: 2009Q3

REPORT INFORMATION
  Report Type: 
  Country: None (occurrence: None)
  Receive Date: 20090803
  Receipt Date: 20090720
  Transmission Date: 20100115
  Serious: Yes (Other)
  Sender: FDA-Public Use
  Company Number: ADR8162009

PATIENT
  Age: 88 Year
  Sex: Female

DRUGS (8)
  1. ALENDRONIC ACID (MFR: UNKNOWN) [Suspect]
     Indication: OSTEOPOROSIS
     Dosage: ORAL
     Dates: start: 20081024, end: 20090223
  2. AMOXICILLIN [Concomitant]
  3. ASPIRIN [Concomitant]
  4. BENDROFLUMETHIAZIDE [Concomitant]
  5. BISOPROLOL FUMARATE [Concomitant]
  6. CALCICHEW D3 [Concomitant]
  7. MOMETASONE FUROATE [Concomitant]
  8. ACETAMINOPHEN [Concomitant]

REACTIONS (3)
  - ATRIAL FIBRILLATION [None]
  - DYSPNOEA [None]
  - MALAISE [None]
